FAERS Safety Report 6475650-1 (Version None)
Quarter: 2009Q4

REPORT INFORMATION
  Report Type: 
  Country: None (occurrence: None)
  Receive Date: 20091204
  Receipt Date: 20090410
  Transmission Date: 20100525
  Serious: No
  Sender: FDA-Public Use
  Company Number: US-AMGEN-KDL326773

PATIENT
  Sex: Female

DRUGS (2)
  1. ENBREL [Suspect]
     Indication: RHEUMATOID ARTHRITIS
     Route: 058
     Dates: start: 20081211
  2. PREDNISONE [Suspect]
     Dates: start: 20080519, end: 20090101

REACTIONS (2)
  - BREAST CELLULITIS [None]
  - RHEUMATOID ARTHRITIS [None]
